FAERS Safety Report 9935442 (Version 2)
Quarter: 2014Q1

REPORT INFORMATION
  Report Type: Spontaneous
  Country: US (occurrence: US)
  Receive Date: 20140228
  Receipt Date: 20140228
  Transmission Date: 20141002
  Serious: No
  Sender: FDA-Public Use
  Company Number: US-PFIZER INC-2014053127

PATIENT
  Age: 62 Year
  Sex: Female
  Weight: 43.99 kg

DRUGS (7)
  1. CELEBREX [Suspect]
     Indication: SJOGREN^S SYNDROME
     Dosage: 200 MG, 1X/DAY
     Route: 048
     Dates: start: 201309, end: 201401
  2. CELEBREX [Suspect]
     Dosage: 200 MG ONCE A DAY
     Route: 048
  3. PLAQUENIL [Concomitant]
     Indication: SJOGREN^S SYNDROME
     Dosage: 200 MG, DAILY
  4. SALAGEN [Concomitant]
     Indication: DRY MOUTH
     Dosage: 5 MG, DAILY
  5. TYLENOL [Concomitant]
     Indication: PAIN
     Dosage: AS NEEDED
  6. BENADRYL [Concomitant]
     Dosage: UNK
  7. IBUPROFEN [Concomitant]
     Dosage: 600 MG, 3X/DAY

REACTIONS (3)
  - Off label use [Unknown]
  - Frequent bowel movements [Unknown]
  - Faeces discoloured [Unknown]
